FAERS Safety Report 17928280 (Version 1)
Quarter: 2020Q2

REPORT INFORMATION
  Report Type: Spontaneous
  Country: US (occurrence: US)
  Receive Date: 20200622
  Receipt Date: 20200622
  Transmission Date: 20200714
  Serious: Yes (Life-Threatening)
  Sender: FDA-Public Use
  Company Number: None

PATIENT
  Age: 74 Year
  Sex: Male

DRUGS (7)
  1. INLYTA [Suspect]
     Active Substance: AXITINIB
     Indication: RENAL CANCER
     Route: 048
     Dates: start: 20200411
  2. LORAZEPAM. [Concomitant]
     Active Substance: LORAZEPAM
  3. NIFEDICAL XL [Concomitant]
     Active Substance: NIFEDIPINE
  4. FINASTERIDE. [Concomitant]
     Active Substance: FINASTERIDE
  5. GLUTAMINE [Concomitant]
     Active Substance: GLUTAMINE
  6. MELATONIN [Concomitant]
     Active Substance: MELATONIN
  7. SUTENT [Concomitant]
     Active Substance: SUNITINIB MALATE

REACTIONS (3)
  - Blood sodium decreased [None]
  - Diarrhoea [None]
  - Blood glucose increased [None]

NARRATIVE: CASE EVENT DATE: 202005
